FAERS Safety Report 22595461 (Version 2)
Quarter: 2023Q2

REPORT INFORMATION
  Report Type: Spontaneous
  Country: FR (occurrence: FR)
  Receive Date: 20230613
  Receipt Date: 20230626
  Transmission Date: 20230722
  Serious: Yes (Hospitalization)
  Sender: FDA-Public Use
  Company Number: None

PATIENT
  Age: 55 Year
  Sex: Female

DRUGS (4)
  1. ABILIFY [Suspect]
     Active Substance: ARIPIPRAZOLE
     Indication: Product used for unknown indication
     Dosage: 1 TABLET GIVEN BY MISTAKE
     Route: 048
     Dates: start: 20230503, end: 20230503
  2. ANETHOLTRITHION [Suspect]
     Active Substance: ANETHOLTRITHION
     Indication: Product used for unknown indication
     Dosage: 1 TABLET GIVEN BY MISTAKE
     Route: 048
     Dates: start: 20230503, end: 20230503
  3. CYAMEMAZINE [Suspect]
     Active Substance: CYAMEMAZINE
     Indication: Product used for unknown indication
     Dosage: 1 TABLET GIVEN BY MISTAKE
     Route: 048
     Dates: start: 20230503, end: 20230503
  4. ATARAX [Suspect]
     Active Substance: HYDROXYZINE HYDROCHLORIDE
     Indication: Product used for unknown indication
     Dosage: 1 TABLET GIVEN BY MISTAKE
     Route: 048
     Dates: start: 20230503, end: 20230503

REACTIONS (2)
  - Somnolence [Recovered/Resolved]
  - Wrong patient received product [Unknown]

NARRATIVE: CASE EVENT DATE: 20230503
